FAERS Safety Report 4764829-2 (Version None)
Quarter: 2005Q3

REPORT INFORMATION
  Report Type: 
  Country: None (occurrence: None)
  Receive Date: 20050907
  Receipt Date: 20050826
  Transmission Date: 20060218
  Serious: Yes (Other)
  Sender: FDA-Public Use
  Company Number: 2005120630

PATIENT
  Age: 74 Year
  Sex: Male
  Weight: 92.5338 kg

DRUGS (3)
  1. LIPITOR [Suspect]
     Indication: BLOOD CHOLESTEROL INCREASED
     Dosage: 10 MG (10 MG, 1 IN 1 D), ORAL
     Route: 048
     Dates: start: 19980101
  2. NORVASC [Concomitant]
  3. ATENOLOL [Concomitant]

REACTIONS (3)
  - COLONIC POLYP [None]
  - PERNICIOUS ANAEMIA [None]
  - PROSTATE CANCER [None]
